FAERS Safety Report 17707818 (Version 1)
Quarter: 2020Q2

REPORT INFORMATION
  Report Type: Report from Study
  Country: US (occurrence: US)
  Receive Date: 20200424
  Receipt Date: 20200424
  Transmission Date: 20200714
  Serious: Yes (Other)
  Sender: FDA-Public Use
  Company Number: US-ELI_LILLY_AND_COMPANY-US202003011943

PATIENT
  Age: 59 Year
  Sex: Female

DRUGS (1)
  1. ABEMACICLIB [Suspect]
     Active Substance: ABEMACICLIB
     Indication: BREAST CANCER METASTATIC
     Dosage: 150 MG, BID
     Route: 048
     Dates: start: 20200318

REACTIONS (15)
  - Electrolyte imbalance [Not Recovered/Not Resolved]
  - Dyspnoea [Recovered/Resolved]
  - Vomiting [Not Recovered/Not Resolved]
  - Arrhythmia [Recovered/Resolved]
  - Decreased appetite [Not Recovered/Not Resolved]
  - Dizziness [Recovered/Resolved]
  - Blood creatinine increased [Unknown]
  - Blood potassium decreased [Not Recovered/Not Resolved]
  - Alopecia [Not Recovered/Not Resolved]
  - Visual impairment [Not Recovered/Not Resolved]
  - White blood cell count decreased [Not Recovered/Not Resolved]
  - Abdominal pain [Not Recovered/Not Resolved]
  - Dehydration [Not Recovered/Not Resolved]
  - Diarrhoea [Not Recovered/Not Resolved]
  - Fatigue [Not Recovered/Not Resolved]

NARRATIVE: CASE EVENT DATE: 20200322
